FAERS Safety Report 4811467-9 (Version None)
Quarter: 2005Q4

REPORT INFORMATION
  Report Type: 
  Country: None (occurrence: None)
  Receive Date: 20051027
  Receipt Date: 20050921
  Transmission Date: 20060501
  Serious: Yes (Disabling)
  Sender: FDA-Public Use
  Company Number: US-ROCHE-418631

PATIENT
  Age: 49 Year
  Sex: Male
  Weight: 106.6 kg

DRUGS (6)
  1. PEG-INTERFERON ALFA 2A (RO 25-8310) [Suspect]
     Route: 058
     Dates: start: 20050429
  2. RIBAVIRIN [Suspect]
     Route: 048
     Dates: start: 20050429
  3. FLUTICASONE [Concomitant]
     Indication: SEASONAL ALLERGY
  4. SILDENAFIL [Concomitant]
     Indication: ERECTILE DYSFUNCTION
     Dosage: DRUG NAME REPORTED AS SIDENAFIL CITRATE.
  5. IBUPROFEN [Concomitant]
     Indication: DRUG USE FOR UNKNOWN INDICATION
     Dosage: TAKEN ^PRE AND POST MED^.
  6. DIPHENHYDRAMINE HCL [Concomitant]
     Indication: INSOMNIA
     Dates: start: 20041006

REACTIONS (5)
  - AGITATION [None]
  - ANGER [None]
  - ANXIETY [None]
  - FATIGUE [None]
  - STRESS [None]
